FAERS Safety Report 16299394 (Version 1)
Quarter: 2019Q2

REPORT INFORMATION
  Report Type: Spontaneous
  Country: US (occurrence: US)
  Receive Date: 20190510
  Receipt Date: 20190510
  Transmission Date: 20190711
  Serious: No
  Sender: FDA-Public Use
  Company Number: US-HORIZON-RAV-0124-2019

PATIENT
  Age: 21 Year
  Sex: Male

DRUGS (1)
  1. RAVICTI [Suspect]
     Active Substance: GLYCEROL PHENYLBUTYRATE
     Indication: METABOLIC DISORDER
     Dosage: 5.5 ML THREE TIMES BY MOUTH DAILY WITH MEALS
     Route: 048

REACTIONS (2)
  - Off label use [Unknown]
  - Fatigue [Unknown]
